FAERS Safety Report 6272240-0 (Version None)
Quarter: 2009Q3

REPORT INFORMATION
  Report Type: 
  Country: None (occurrence: None)
  Receive Date: 20090717
  Receipt Date: 20090710
  Transmission Date: 20100115
  Serious: Yes (Other)
  Sender: FDA-Public Use
  Company Number: US-JNJFOC-20090704733

PATIENT
  Sex: Female

DRUGS (5)
  1. TOPAMAX [Suspect]
  2. TOPAMAX [Suspect]
  3. TOPAMAX [Suspect]
     Indication: NEURALGIA
  4. CHLOROQUINE [Interacting]
     Indication: DRUG USE FOR UNKNOWN INDICATION
  5. BROMOCRIPTINE [Interacting]
     Indication: DRUG USE FOR UNKNOWN INDICATION

REACTIONS (8)
  - AMNESIA [None]
  - APHASIA [None]
  - ATAXIA [None]
  - DIZZINESS [None]
  - DRUG INTERACTION [None]
  - DYSARTHRIA [None]
  - HALLUCINATION [None]
  - LOSS OF CONSCIOUSNESS [None]
